FAERS Safety Report 5721475-1 (Version None)
Quarter: 2008Q2

REPORT INFORMATION
  Report Type: 
  Country: None (occurrence: None)
  Receive Date: 20080428
  Receipt Date: 20080428
  Transmission Date: 20081010
  Serious: No
  Sender: FDA-Public Use
  Company Number: None

PATIENT
  Age: 46 Year
  Sex: Female

DRUGS (3)
  1. LYRICA [Suspect]
     Dosage: 75 MILLIGRAM BOTTLE
     Dates: start: 20070301, end: 20070501
  2. HYDROCODONE BITARTRATE [Concomitant]
  3. NORCO [Concomitant]

REACTIONS (7)
  - COORDINATION ABNORMAL [None]
  - CYST [None]
  - LETHARGY [None]
  - SKIN STRIAE [None]
  - SPEECH DISORDER [None]
  - SWELLING FACE [None]
  - WEIGHT INCREASED [None]
